FAERS Safety Report 12721372 (Version 3)
Quarter: 2016Q4

REPORT INFORMATION
  Report Type: Report from Study
  Country: None (occurrence: CH)
  Receive Date: 20160907
  Receipt Date: 20161110
  Transmission Date: 20170207
  Serious: Yes (Hospitalization)
  Sender: FDA-Public Use
  Company Number: CH-ABBVIE-16K-151-1719789-00

PATIENT
  Sex: Male

DRUGS (1)
  1. DUODOPA [Suspect]
     Active Substance: CARBIDOPA\LEVODOPA
     Indication: PARKINSON^S DISEASE
     Dosage: MD: 3.7ML CRD: 3.8ML/H, CRN: 2.1ML/H, ED: 2.5ML; 24H THERAPY
     Route: 050
     Dates: start: 20101011

REACTIONS (2)
  - Device occlusion [Unknown]
  - Squamous cell carcinoma [Unknown]
